FAERS Safety Report 24621014 (Version 2)
Quarter: 2024Q4

REPORT INFORMATION
  Report Type: Report from Study
  Country: IL (occurrence: IL)
  Receive Date: 20241114
  Receipt Date: 20241210
  Transmission Date: 20250115
  Serious: Yes (Death, Life-Threatening, Hospitalization)
  Sender: JOHNSON AND JOHNSON
  Company Number: IL-JNJFOC-20241105709

PATIENT
  Age: 74 Year
  Sex: Male

DRUGS (5)
  1. TALVEY [Suspect]
     Active Substance: TALQUETAMAB-TGVS
     Indication: Product used for unknown indication
     Route: 065
     Dates: start: 20231220
  2. TALVEY [Suspect]
     Active Substance: TALQUETAMAB-TGVS
     Dosage: DOSE 2
     Route: 065
     Dates: start: 20231224
  3. TALVEY [Suspect]
     Active Substance: TALQUETAMAB-TGVS
     Dosage: DOSE 3
     Route: 065
     Dates: start: 20231227
  4. TALVEY [Suspect]
     Active Substance: TALQUETAMAB-TGVS
     Dosage: DOSE 3
     Route: 065
     Dates: start: 20240101
  5. ACYCLOVIR [Concomitant]
     Active Substance: ACYCLOVIR
     Indication: Prophylaxis
     Dates: start: 20231201, end: 20240416

REACTIONS (2)
  - Septic shock [Fatal]
  - Spontaneous bacterial peritonitis [Fatal]

NARRATIVE: CASE EVENT DATE: 20240415
